FAERS Safety Report 9531491 (Version 1)
Quarter: 2013Q3

REPORT INFORMATION
  Report Type: Spontaneous
  Country: DK (occurrence: None)
  Receive Date: 20130916
  Receipt Date: 20130916
  Transmission Date: 20140515
  Serious: Yes (Life-Threatening, Hospitalization)
  Sender: FDA-Public Use
  Company Number: 2013P1019188

PATIENT
  Age: 44 Year
  Sex: Male

DRUGS (3)
  1. THIAMINE [Suspect]
     Indication: VITAMIN B1 DEFICIENCY
     Route: 042
  2. THIAMINE [Suspect]
     Indication: PROPHYLAXIS
     Route: 042
  3. ALCOHOL [Concomitant]

REACTIONS (7)
  - Cardiac arrest [None]
  - Unresponsive to stimuli [None]
  - Pulseless electrical activity [None]
  - Atrial fibrillation [None]
  - Bundle branch block right [None]
  - Rib fracture [None]
  - Anaphylactic reaction [None]
